FAERS Safety Report 13766939 (Version 1)
Quarter: 2017Q3

REPORT INFORMATION
  Report Type: Spontaneous
  Country: None (occurrence: US)
  Receive Date: 20170719
  Receipt Date: 20170719
  Transmission Date: 20171127
  Serious: No
  Sender: FDA-Public Use
  Company Number: None

PATIENT
  Age: 33 Year
  Sex: Female
  Weight: 90.7 kg

DRUGS (5)
  1. CYCLOPHOSPHAMIDE. [Concomitant]
     Active Substance: CYCLOPHOSPHAMIDE
  2. DEXAMETHASONE. [Concomitant]
     Active Substance: DEXAMETHASONE
  3. LASIX [Concomitant]
     Active Substance: FUROSEMIDE
  4. EPIRUBICIN [Concomitant]
     Active Substance: EPIRUBICIN
  5. MEMANTINE HYDROCHLORIDE. [Suspect]
     Active Substance: MEMANTINE HYDROCHLORIDE
     Dates: end: 20170712

REACTIONS (4)
  - Hypokalaemia [None]
  - Dyspnoea [None]
  - Peripheral swelling [None]
  - Anaemia [None]

NARRATIVE: CASE EVENT DATE: 20170712
